FAERS Safety Report 10245887 (Version 1)
Quarter: 2014Q2

REPORT INFORMATION
  Report Type: Spontaneous
  Country: IT (occurrence: IT)
  Receive Date: 20140619
  Receipt Date: 20140619
  Transmission Date: 20141212
  Serious: Yes (Other)
  Sender: FDA-Public Use
  Company Number: IT-AMGEN INC.-ITASP2014045119

PATIENT
  Sex: 0

DRUGS (5)
  1. PEGFILGRASTIM [Suspect]
     Indication: BREAST CANCER
     Dosage: 6 MG, UNK
     Route: 058
  2. EPIRUBICIN                         /00699302/ [Suspect]
     Indication: BREAST CANCER
     Dosage: 90 MG/M2, ON DAY 1, Q14
     Route: 065
  3. CYCLOPHOSPHAMIDE [Suspect]
     Indication: BREAST CANCER
     Dosage: 600 MG/M2, ON DAY 1, Q14
     Route: 065
  4. FLUOROURACIL [Suspect]
     Indication: BREAST CANCER
     Dosage: 600 MG/M2, ON DAY 1, Q14
     Route: 065
  5. PACLITAXEL [Suspect]
     Indication: BREAST CANCER
     Dosage: 175 MG/M2, ON DAY 1, Q14
     Route: 065

REACTIONS (1)
  - Anaemia [Unknown]
